FAERS Safety Report 6723124-2 (Version None)
Quarter: 2010Q2

REPORT INFORMATION
  Report Type: 
  Country: None (occurrence: None)
  Receive Date: 20100513
  Receipt Date: 20100503
  Transmission Date: 20101027
  Serious: Yes (Other)
  Sender: FDA-Public Use
  Company Number: US-BAYER-201021642NA

PATIENT
  Age: 17 Year
  Sex: Female

DRUGS (1)
  1. MIRENA [Suspect]
     Indication: CONTRACEPTION
     Route: 015
     Dates: start: 20081205, end: 20100503

REACTIONS (4)
  - DEPRESSION [None]
  - PELVIC PAIN [None]
  - SUICIDAL IDEATION [None]
  - VAGINAL HAEMORRHAGE [None]
